FAERS Safety Report 8606525-7 (Version None)
Quarter: 2012Q3

REPORT INFORMATION
  Report Type: 
  Country: None (occurrence: None)
  Receive Date: 20120820
  Receipt Date: 20120816
  Transmission Date: 20120928
  Serious: Yes (Death, Life-Threatening, Hospitalization)
  Sender: FDA-Public Use
  Company Number: PHHY2012CN070048

PATIENT
  Sex: Male
  Weight: 70 kg

DRUGS (6)
  1. CYTARABINE [Concomitant]
     Dosage: 100 MG, PER DAY
     Route: 042
     Dates: start: 20120710, end: 20120716
  2. INTERFERON ALFA-2B [Concomitant]
     Dosage: 10 MG, PER DAY
     Route: 042
     Dates: start: 20120717, end: 20120723
  3. IMATINIB MESYLATE [Suspect]
     Indication: CHRONIC MYELOID LEUKAEMIA
     Dosage: 400-600 MG, PER DAY
     Route: 048
     Dates: start: 20120401
  4. IMATINIB MESYLATE [Suspect]
     Dosage: 400 MG, PER DAY
     Route: 048
     Dates: end: 20120810
  5. HOMOHARRINGTONINE [Concomitant]
     Dosage: 2 MG, PER DAY
     Route: 042
     Dates: start: 20120710, end: 20120716
  6. ARSENIC TRIOXIDE [Concomitant]
     Dosage: 3000000 U, UNK
     Route: 058
     Dates: start: 20120724, end: 20120809

REACTIONS (12)
  - SPLENOMEGALY [None]
  - CHRONIC MYELOID LEUKAEMIA [None]
  - DEATH [None]
  - PYREXIA [None]
  - COUGH [None]
  - NEOPLASM MALIGNANT [None]
  - RALES [None]
  - WHITE BLOOD CELL COUNT INCREASED [None]
  - ABDOMINAL DISTENSION [None]
  - PRODUCTIVE COUGH [None]
  - LUNG INFECTION [None]
  - ABDOMINAL PAIN [None]
